FAERS Safety Report 7548798-8 (Version None)
Quarter: 2011Q2

REPORT INFORMATION
  Report Type: 
  Country: None (occurrence: None)
  Receive Date: 20110608
  Receipt Date: 20110602
  Transmission Date: 20111010
  Serious: Yes (Death, Hospitalization, Other)
  Sender: FDA-Public Use
  Company Number: 201110668

PATIENT
  Age: 55 Year
  Sex: Female

DRUGS (3)
  1. LIORESAL [Suspect]
     Indication: MUSCLE SPASTICITY
     Dosage: 115 MCG AND 149.96, DAILY, INTRATHECAL
     Route: 037
  2. DILAUDID [Concomitant]
  3. BUPIVACAINE 30 MG/ML [Concomitant]

REACTIONS (4)
  - DEVICE DISLOCATION [None]
  - PAIN [None]
  - MEDICAL DEVICE COMPLICATION [None]
  - CONDITION AGGRAVATED [None]
